FAERS Safety Report 15479838 (Version 2)
Quarter: 2018Q4

REPORT INFORMATION
  Report Type: Spontaneous
  Country: CA (occurrence: CA)
  Receive Date: 20181009
  Receipt Date: 20181205
  Transmission Date: 20190205
  Serious: Yes (Other)
  Sender: FDA-Public Use
  Company Number: CA-BAUSCH-BL-2018-027509

PATIENT
  Age: 64 Year
  Sex: Female
  Weight: 54.93 kg

DRUGS (3)
  1. LOPROX [Suspect]
     Active Substance: CICLOPIROX\CICLOPIROX OLAMINE
     Indication: BODY TINEA
     Route: 061
     Dates: start: 20180914, end: 2018
  2. LOPROX [Suspect]
     Active Substance: CICLOPIROX\CICLOPIROX OLAMINE
     Indication: TINEA INFECTION
  3. VITAMINS [Concomitant]
     Active Substance: VITAMINS
     Indication: PRODUCT USED FOR UNKNOWN INDICATION

REACTIONS (6)
  - Application site rash [Not Recovered/Not Resolved]
  - Application site pain [Unknown]
  - Vascular injury [Not Recovered/Not Resolved]
  - Drug ineffective [Recovered/Resolved]
  - Application site pruritus [Unknown]
  - Product label issue [Recovered/Resolved]

NARRATIVE: CASE EVENT DATE: 201809
